FAERS Safety Report 4503267-4 (Version None)
Quarter: 2004Q4

REPORT INFORMATION
  Report Type: 
  Country: None (occurrence: None)
  Receive Date: 20041112
  Receipt Date: 20041101
  Transmission Date: 20050328
  Serious: Yes (Congenital Anomaly, Other)
  Sender: FDA-Public Use
  Company Number: 2004087503

PATIENT
  Sex: Male

DRUGS (2)
  1. PHENYTOIN SODIUM (PHENYTOIN SODIUM) [Suspect]
     Indication: ILL-DEFINED DISORDER
     Dosage: 300 MG,
  2. VALPROATE SODIUM [Suspect]
     Indication: ILL-DEFINED DISORDER
     Dosage: 1500 MG

REACTIONS (5)
  - CONGENITAL ANOMALY [None]
  - DENTAL CARIES [None]
  - DRUG EXPOSURE DURING PREGNANCY [None]
  - DYSPRAXIA [None]
  - FACIAL DYSMORPHISM [None]
